FAERS Safety Report 11485336 (Version 1)
Quarter: 2015Q3

REPORT INFORMATION
  Report Type: Spontaneous
  Country: JP (occurrence: JP)
  Receive Date: 20150909
  Receipt Date: 20150909
  Transmission Date: 20151125
  Serious: Yes (Other)
  Sender: FDA-Public Use
  Company Number: JP-GSKJP-JP2015JPN126109AA

PATIENT

DRUGS (2)
  1. ZEFIX [Suspect]
     Active Substance: LAMIVUDINE
     Route: 048
  2. HEPSERA [Suspect]
     Active Substance: ADEFOVIR DIPIVOXIL
     Dosage: UNK
     Route: 048

REACTIONS (1)
  - Renal impairment [Unknown]
